FAERS Safety Report 11905798 (Version 2)
Quarter: 2016Q2

REPORT INFORMATION
  Report Type: Other
  Country: US (occurrence: US)
  Receive Date: 20160107
  Receipt Date: 20160427
  Transmission Date: 20160815
  Serious: Yes (Other)
  Sender: FDA-Public Use
  Company Number: PC0000774

PATIENT
  Age: 63 Year
  Sex: Male
  Weight: 84.09 kg

DRUGS (1)
  1. SODIUM FLUORIDE F-18. [Suspect]
     Active Substance: SODIUM FLUORIDE F-18
     Indication: POSITRON EMISSION TOMOGRAM
     Route: 040
     Dates: start: 20151222, end: 20151222

REACTIONS (1)
  - Hypersensitivity [Recovered/Resolved]

NARRATIVE: CASE EVENT DATE: 20151222
